FAERS Safety Report 20216884 (Version 1)
Quarter: 2021Q4

REPORT INFORMATION
  Report Type: Spontaneous
  Country: US (occurrence: None)
  Receive Date: 20211222
  Receipt Date: 20211222
  Transmission Date: 20220303
  Serious: Yes (Hospitalization)
  Sender: FDA-Public Use
  Company Number: None

PATIENT
  Age: 80 Year
  Sex: Female
  Weight: 94.3 kg

DRUGS (2)
  1. BEVACIZUMAB [Suspect]
     Active Substance: BEVACIZUMAB
     Dates: end: 20211206
  2. DOXIL [Suspect]
     Active Substance: DOXORUBICIN HYDROCHLORIDE
     Dates: end: 20211206

REACTIONS (9)
  - Nausea [None]
  - Vomiting [None]
  - Dysuria [None]
  - Hydronephrosis [None]
  - Pyelonephritis [None]
  - Urinary tract infection [None]
  - Acute kidney injury [None]
  - Culture urine positive [None]
  - Enterococcus test positive [None]

NARRATIVE: CASE EVENT DATE: 20211213
